FAERS Safety Report 5122531-1 (Version None)
Quarter: 2006Q4

REPORT INFORMATION
  Report Type: 
  Country: None (occurrence: None)
  Receive Date: 20061004
  Receipt Date: 20061004
  Transmission Date: 20070319
  Serious: Yes (Hospitalization)
  Sender: FDA-Public Use
  Company Number: None

PATIENT
  Age: 61 Year
  Sex: Male

DRUGS (2)
  1. INVANZ [Suspect]
     Indication: OSTEOMYELITIS
     Dosage: 1000.0 MILLIGRAM
     Dates: start: 20060516, end: 20060524
  2. VANCOMYCIN [Suspect]
     Indication: OSTEOMYELITIS
     Dosage: INTRAVENOUS;1000.0
     Route: 042
     Dates: start: 20060516, end: 20060524

REACTIONS (2)
  - BLOOD CREATININE INCREASED [None]
  - NEPHRITIS INTERSTITIAL [None]
